FAERS Safety Report 4615121-8 (Version None)
Quarter: 2005Q1

REPORT INFORMATION
  Report Type: 
  Country: None (occurrence: None)
  Receive Date: 20050322
  Receipt Date: 20050201
  Transmission Date: 20050727
  Serious: Yes (Other)
  Sender: FDA-Public Use
  Company Number: 2004-12-1198

PATIENT
  Age: 23 Year
  Sex: Male
  Weight: 62.7 kg

DRUGS (3)
  1. PAXIL [Suspect]
     Indication: DEPRESSION
     Dosage: 10MG UNKNOWN
     Route: 048
     Dates: start: 20041018, end: 20050104
  2. INTRON A [Suspect]
     Indication: MALIGNANT MELANOMA
     Dosage: 15MU THREE TIMES PER WEEK
     Route: 058
     Dates: start: 20041018, end: 20041220
  3. ATIVAN [Concomitant]
     Indication: RESTLESSNESS
     Dosage: 1MG AS REQUIRED
     Route: 048
     Dates: start: 20041012, end: 20041220

REACTIONS (4)
  - AGGRESSION [None]
  - FATIGUE [None]
  - SUICIDE ATTEMPT [None]
  - TREATMENT NONCOMPLIANCE [None]
